FAERS Safety Report 13783215 (Version 4)
Quarter: 2018Q1

REPORT INFORMATION
  Report Type: Report from Study
  Country: JP (occurrence: JP)
  Receive Date: 20170724
  Receipt Date: 20180215
  Transmission Date: 20180508
  Serious: Yes (Hospitalization, Other)
  Sender: FDA-Public Use
  Company Number: JP-ACTELION-A-CH2017-156779

PATIENT
  Age: 84 Year
  Sex: Male

DRUGS (8)
  1. ANPLAG [Concomitant]
     Active Substance: SARPOGRELATE
  2. ACTONEL [Concomitant]
     Active Substance: RISEDRONATE SODIUM
  3. TRACLEER [Suspect]
     Active Substance: BOSENTAN
     Indication: SKIN ULCER
     Dosage: 62.5 MG, BID
     Route: 048
     Dates: start: 20160107, end: 20160309
  4. SARPOGRELATE [Concomitant]
     Active Substance: SARPOGRELATE
  5. PROCYLIN [Concomitant]
     Active Substance: BERAPROST SODIUM
  6. PREDONINE [Concomitant]
     Active Substance: PREDNISOLONE
     Dosage: 10 MG, UNK
     Dates: start: 200905
  7. URSO [Concomitant]
     Active Substance: URSODIOL
  8. THYRADIN [Concomitant]
     Active Substance: LEVOTHYROXINE

REACTIONS (12)
  - Pneumonia aspiration [Recovered/Resolved]
  - Renal impairment [Unknown]
  - Loss of personal independence in daily activities [Recovering/Resolving]
  - Anaemia [Recovering/Resolving]
  - Hypoalbuminaemia [Recovered/Resolved]
  - Fluid retention [Unknown]
  - Pleural effusion [Recovered/Resolved]
  - Haemodilution [Recovering/Resolving]
  - Oedema peripheral [Recovering/Resolving]
  - Capillary permeability increased [Recovering/Resolving]
  - Fall [Recovered/Resolved]
  - Transfusion [Unknown]

NARRATIVE: CASE EVENT DATE: 20160129
